FAERS Safety Report 15978555 (Version 2)
Quarter: 2019Q1

REPORT INFORMATION
  Report Type: Report from Study
  Country: US (occurrence: US)
  Receive Date: 20190219
  Receipt Date: 20190227
  Transmission Date: 20190418
  Serious: Yes (Other)
  Sender: FDA-Public Use
  Company Number: US-ALEXION PHARMACEUTICALS INC.-A201902239

PATIENT
  Age: 28 Year
  Sex: Female

DRUGS (1)
  1. SOLIRIS [Suspect]
     Active Substance: ECULIZUMAB
     Indication: PAROXYSMAL NOCTURNAL HAEMOGLOBINURIA
     Dosage: UNK
     Route: 065

REACTIONS (7)
  - Haemoglobinuria [Recovered/Resolved]
  - Rash [Recovered/Resolved]
  - Jaundice [Recovered/Resolved]
  - Haemolysis [Recovered/Resolved]
  - Drug hypersensitivity [Recovered/Resolved]
  - Infection [Recovered/Resolved]
  - Fatigue [Recovered/Resolved]

NARRATIVE: CASE EVENT DATE: 201801
